FAERS Safety Report 5192621-6 (Version None)
Quarter: 2006Q4

REPORT INFORMATION
  Report Type: 
  Country: None (occurrence: None)
  Receive Date: 20061220
  Receipt Date: 20061211
  Transmission Date: 20070319
  Serious: Yes (Hospitalization, Other)
  Sender: FDA-Public Use
  Company Number: 2005147664

PATIENT
  Age: 25 Year
  Sex: Female

DRUGS (6)
  1. NEURONTIN [Suspect]
     Indication: BIPOLAR DISORDER
     Dosage: 900 MG (300 MG, 3 IN 1 D), ORAL
     Route: 048
     Dates: start: 20010123
  2. CLONAZEPAM [Suspect]
  3. CELEXA [Suspect]
  4. PAXIL [Suspect]
  5. ALCOHOL (ETHANOL) [Suspect]
  6. COCAINE (COCAINE) [Suspect]

REACTIONS (4)
  - ALCOHOL POISONING [None]
  - DRUG INEFFECTIVE [None]
  - MULTIPLE DRUG OVERDOSE INTENTIONAL [None]
  - SUICIDE ATTEMPT [None]
